FAERS Safety Report 14673308 (Version 2)
Quarter: 2018Q2

REPORT INFORMATION
  Report Type: Report from Study
  Country: JP (occurrence: JP)
  Receive Date: 20180323
  Receipt Date: 20180403
  Transmission Date: 20180711
  Serious: Yes (Hospitalization)
  Sender: FDA-Public Use
  Company Number: JP-TAIHO ONCOLOGY INC-JPTT180224

PATIENT
  Age: 66 Year
  Sex: Female
  Weight: 43 kg

DRUGS (9)
  1. AVASTIN [Suspect]
     Active Substance: BEVACIZUMAB
     Indication: COLORECTAL CANCER RECURRENT
     Route: 041
     Dates: start: 20180222, end: 20180222
  2. BIOFERMIN R [Concomitant]
     Active Substance: BACILLUS SUBTILIS\LACTOBACILLUS ACIDOPHILUS\STREPTOCOCCUS FAECAIS
     Indication: DIARRHOEA
     Route: 048
     Dates: start: 20180222, end: 20180307
  3. FUROSEMIDE. [Concomitant]
     Active Substance: FUROSEMIDE
     Indication: OEDEMA
     Route: 048
     Dates: start: 20180222, end: 20180307
  4. PHELLOBERIN [Concomitant]
     Active Substance: BERBERINE\GERANIUM
     Indication: DIARRHOEA
     Dosage: NUMBER OF DIVIDED DOSES NOT REPORTED
     Route: 048
     Dates: start: 20180222, end: 20180307
  5. LANSOPRAZOLE OD [Concomitant]
     Active Substance: LANSOPRAZOLE
     Indication: GASTRIC ULCER
     Route: 048
     Dates: start: 20180222, end: 20180307
  6. SODIUM FERROUS CITRATE [Concomitant]
     Active Substance: SODIUM FERROUS CITRATE
     Indication: ANAEMIA
     Dosage: NUMBER OF DIVIDED DOSES NOT REPORTED
     Route: 048
     Dates: start: 20180222, end: 20180307
  7. FENTOS [Concomitant]
     Active Substance: FENTANYL
     Indication: PAIN
     Route: 046
     Dates: start: 20180222, end: 20180307
  8. LONSURF [Suspect]
     Active Substance: TIPIRACIL HYDROCHLORIDE\TRIFLURIDINE
     Indication: COLORECTAL CANCER RECURRENT
     Dosage: 100 MG/DAY, ON DAYS 1-5 AND 8-12 OF EACH 28-DAY CYCLE, CYCLE 1
     Route: 048
     Dates: start: 20180222, end: 20180305
  9. ZOLPIDEM TARTRATE OD [Concomitant]
     Active Substance: ZOLPIDEM TARTRATE
     Indication: INSOMNIA
     Route: 048
     Dates: start: 20180222, end: 20180307

REACTIONS (2)
  - Vomiting [Recovering/Resolving]
  - Hypokalaemia [Recovering/Resolving]

NARRATIVE: CASE EVENT DATE: 20180307
